FAERS Safety Report 22192516 (Version 1)
Quarter: 2023Q2

REPORT INFORMATION
  Report Type: Spontaneous
  Country: CA (occurrence: CA)
  Receive Date: 20230410
  Receipt Date: 20230410
  Transmission Date: 20230722
  Serious: Yes (Hospitalization)
  Sender: FDA-Public Use
  Company Number: CA-PFIZER INC-202300147130

PATIENT
  Age: 88 Year
  Sex: Female

DRUGS (2)
  1. METHOTREXATE SODIUM [Suspect]
     Active Substance: METHOTREXATE SODIUM
     Dosage: 1 DF
     Route: 065
  2. ENBREL [Concomitant]
     Active Substance: ETANERCEPT
     Dosage: 50 MG, WEEKLY
     Route: 065

REACTIONS (3)
  - Drug ineffective [Unknown]
  - Intestinal obstruction [Recovering/Resolving]
  - Immune system disorder [Unknown]
